FAERS Safety Report 9058424 (Version 2)
Quarter: 2013Q1

REPORT INFORMATION
  Report Type: Spontaneous
  Country: US (occurrence: US)
  Receive Date: 20130211
  Receipt Date: 20130219
  Transmission Date: 20140127
  Serious: Yes (Other)
  Sender: FDA-Public Use
  Company Number: US-JNJFOC-20130201339

PATIENT
  Sex: 0

DRUGS (9)
  1. DOXORUBICIN [Suspect]
     Indication: TRANSITIONAL CELL CARCINOMA
     Dosage: ON DAY 3
     Route: 042
  2. DOXORUBICIN [Suspect]
     Indication: TRANSITIONAL CELL CARCINOMA
     Dosage: ON DAY 3
     Route: 042
  3. IFOSFAMIDE [Suspect]
     Indication: TRANSITIONAL CELL CARCINOMA
     Dosage: INFUSED OVER 3 HOURS ON DAY 1 TO 4
     Route: 042
  4. IFOSFAMIDE [Suspect]
     Indication: TRANSITIONAL CELL CARCINOMA
     Dosage: ON DAY 1 TO 4
     Route: 042
  5. MESNA [Suspect]
     Indication: TRANSITIONAL CELL CARCINOMA
     Dosage: ON DAYS 1 TO 4
     Route: 042
  6. MESNA [Suspect]
     Indication: TRANSITIONAL CELL CARCINOMA
     Dosage: ON DAYS 1 TO 4
     Route: 042
  7. GEMCITABINE [Suspect]
     Indication: TRANSITIONAL CELL CARCINOMA
     Dosage: DAY 2 AND 4
     Route: 042
  8. GEMCITABINE [Suspect]
     Indication: TRANSITIONAL CELL CARCINOMA
     Dosage: DAY 2 AND 4
     Route: 042
  9. SODIUM ACETATE [Concomitant]
     Indication: FLUID REPLACEMENT
     Route: 065

REACTIONS (16)
  - Febrile neutropenia [Unknown]
  - Platelet transfusion [Unknown]
  - Thrombosis in device [Unknown]
  - Nausea [Unknown]
  - Infection [Unknown]
  - Mucosal inflammation [Unknown]
  - Dehydration [Unknown]
  - Fatigue [Unknown]
  - Vomiting [Unknown]
  - Device related infection [Unknown]
  - Chest pain [Unknown]
  - Diarrhoea [Unknown]
  - Pain [Unknown]
  - Packed red blood cell transfusion [Unknown]
  - Drug ineffective [Unknown]
  - Off label use [Unknown]
